FAERS Safety Report 9281712 (Version 2)
Quarter: 2013Q3

REPORT INFORMATION
  Report Type: Spontaneous
  Country: US (occurrence: US)
  Receive Date: 20130510
  Receipt Date: 20130812
  Transmission Date: 20140515
  Serious: Yes (Hospitalization, Other)
  Sender: FDA-Public Use
  Company Number: US-B.I. PHARMACEUTICALS,INC./RIDGEFIELD-2013-BI-12880BP

PATIENT
  Sex: Male
  Weight: 90.72 kg

DRUGS (14)
  1. PRADAXA [Suspect]
     Indication: ANTICOAGULANT THERAPY
     Dosage: 300 MG
     Dates: start: 20110428, end: 20120125
  2. PRADAXA [Suspect]
     Indication: ATRIAL FIBRILLATION
  3. SPIRONOLACTONE [Concomitant]
     Dosage: 150 MG
  4. CARBIDOPA-LEVODOPA [Concomitant]
  5. ADVAIR [Concomitant]
     Indication: ASTHMA
  6. LASIX [Concomitant]
     Dosage: 80 MG
  7. METOPROLOL [Concomitant]
     Dosage: 100 MG
  8. HCTZ [Concomitant]
     Dosage: 25 MG
  9. NEURONTIN [Concomitant]
     Dosage: 300 MG
  10. FERROUS SULFATE [Concomitant]
     Dosage: 975 MG
  11. VIT B 12 [Concomitant]
     Dosage: 1000 MG
  12. VIT C [Concomitant]
     Dosage: 750 MG
  13. MULTIVITAMIN [Concomitant]
  14. DOCUSATE [Concomitant]
     Dosage: 200 MG

REACTIONS (4)
  - Gastrointestinal haemorrhage [Unknown]
  - Anaemia [Unknown]
  - Adenocarcinoma of colon [Unknown]
  - Colon cancer [Unknown]
